FAERS Safety Report 25266411 (Version 1)
Quarter: 2025Q2

REPORT INFORMATION
  Report Type: Spontaneous
  Country: JP (occurrence: JP)
  Receive Date: 20250505
  Receipt Date: 20250505
  Transmission Date: 20250716
  Serious: Yes (Disabling)
  Sender: MERCK SHARP & DOHME LLC
  Company Number: JP-009507513-2270659

PATIENT
  Age: 84 Year
  Sex: Female

DRUGS (2)
  1. JANUVIA [Suspect]
     Active Substance: SITAGLIPTIN PHOSPHATE
     Indication: Type 2 diabetes mellitus
     Route: 048
  2. INSULIN NOS [Concomitant]
     Active Substance: INSULIN NOS
     Route: 065

REACTIONS (4)
  - Oral mucosal erythema [Unknown]
  - Feeding disorder [Unknown]
  - Oral pain [Unknown]
  - Mouth swelling [Unknown]
